FAERS Safety Report 25948823 (Version 2)
Quarter: 2025Q4

REPORT INFORMATION
  Report Type: Spontaneous
  Country: US (occurrence: US)
  Receive Date: 20251022
  Receipt Date: 20251107
  Transmission Date: 20260117
  Serious: No
  Sender: GILEAD
  Company Number: US-GILEAD-2025-0733269

PATIENT
  Age: 32 Year
  Sex: Male

DRUGS (1)
  1. DESCOVY [Suspect]
     Active Substance: EMTRICITABINE\TENOFOVIR ALAFENAMIDE FUMARATE
     Indication: Prophylaxis against HIV infection
     Dosage: UNK
     Route: 065

REACTIONS (3)
  - Product use issue [Unknown]
  - Product temperature excursion issue [Unknown]
  - Product dose omission issue [Unknown]

NARRATIVE: CASE EVENT DATE: 20251028
